FAERS Safety Report 14819543 (Version 5)
Quarter: 2020Q3

REPORT INFORMATION
  Report Type: Spontaneous
  Country: US (occurrence: US)
  Receive Date: 20180427
  Receipt Date: 20200702
  Transmission Date: 20201102
  Serious: Yes (Other)
  Sender: FDA-Public Use
  Company Number: US-BRISTOL-MYERS SQUIBB COMPANY-BMS-2018-036940

PATIENT
  Sex: Male

DRUGS (1)
  1. OPDIVO [Suspect]
     Active Substance: NIVOLUMAB
     Indication: NEUROENDOCRINE CARCINOMA OF THE SKIN
     Dosage: UNK
     Route: 065

REACTIONS (8)
  - Renal impairment [Unknown]
  - Fatigue [Unknown]
  - Diarrhoea [Unknown]
  - Thyroid disorder [Unknown]
  - Hypoaesthesia [Unknown]
  - Intentional product use issue [Unknown]
  - Malaise [Unknown]
  - Myocardial infarction [Unknown]
